FAERS Safety Report 8109041-4 (Version None)
Quarter: 2012Q1

REPORT INFORMATION
  Report Type: 
  Country: None (occurrence: None)
  Receive Date: 20120202
  Receipt Date: 20110324
  Transmission Date: 20120608
  Serious: Yes (Death, Other)
  Sender: FDA-Public Use
  Company Number: KE-PFIZER INC-2011063961

PATIENT
  Age: 4 Day

DRUGS (1)
  1. SILDENAFIL CITRATE [Suspect]
     Indication: LUNG DISORDER
     Dosage: 0.2 MG/KG, UNK

REACTIONS (3)
  - DYSPNOEA [None]
  - DEATH [None]
  - GENERAL PHYSICAL HEALTH DETERIORATION [None]
